FAERS Safety Report 5297920-5 (Version None)
Quarter: 2007Q2

REPORT INFORMATION
  Report Type: 
  Country: None (occurrence: None)
  Receive Date: 20070416
  Receipt Date: 20070412
  Transmission Date: 20071010
  Serious: Yes (Hospitalization)
  Sender: FDA-Public Use
  Company Number: US-GLAXOSMITHKLINE-A0646996A

PATIENT
  Age: 45 Year
  Sex: Male

DRUGS (7)
  1. WELLBUTRIN [Suspect]
     Indication: DEPRESSION
     Dosage: 200MG TWICE PER DAY
     Route: 048
     Dates: start: 19970101, end: 20070406
  2. NADOL [Concomitant]
  3. PROZAC [Concomitant]
  4. CONCERTA [Concomitant]
  5. ALLEGRA [Concomitant]
  6. ZANTAC [Concomitant]
  7. CLONAZEPAM [Concomitant]

REACTIONS (2)
  - CONVULSION [None]
  - OVERDOSE [None]
